FAERS Safety Report 5616582-8 (Version None)
Quarter: 2008Q1

REPORT INFORMATION
  Report Type: 
  Country: None (occurrence: None)
  Receive Date: 20080207
  Receipt Date: 20070814
  Transmission Date: 20080703
  Serious: No
  Sender: FDA-Public Use
  Company Number: A0670188A

PATIENT
  Age: 83 Year
  Sex: Female

DRUGS (8)
  1. PAXIL CR [Suspect]
     Indication: DEPRESSION
     Dosage: 37.5MG PER DAY
     Route: 048
     Dates: start: 20060101, end: 20070808
  2. AMLODIPINE [Concomitant]
  3. DIOVAN [Concomitant]
  4. CELEBREX [Concomitant]
  5. ISOSORBIDE DINITRATE [Concomitant]
  6. XALATAN [Concomitant]
  7. AZOPT [Concomitant]
  8. PAXIL [Concomitant]
     Indication: DEPRESSION
     Route: 048
     Dates: start: 20020101, end: 20060101

REACTIONS (5)
  - ABNORMAL BEHAVIOUR [None]
  - ANXIETY [None]
  - CRYING [None]
  - MOOD ALTERED [None]
  - PHARMACEUTICAL PRODUCT COMPLAINT [None]
